FAERS Safety Report 19614398 (Version 4)
Quarter: 2022Q1

REPORT INFORMATION
  Report Type: Spontaneous
  Country: PL (occurrence: PL)
  Receive Date: 20210727
  Receipt Date: 20220310
  Transmission Date: 20220423
  Serious: Yes (Life-Threatening, Other)
  Sender: FDA-Public Use
  Company Number: None

PATIENT
  Age: 35 Year
  Sex: Male
  Weight: 118 kg

DRUGS (2)
  1. RISPERDAL [Suspect]
     Active Substance: RISPERIDONE
     Indication: Product used for unknown indication
     Dosage: DOSE: APPROX 30 TABLETS
     Route: 065
     Dates: start: 20200811, end: 20200811
  2. PAROXETINE [Concomitant]
     Active Substance: PAROXETINE
     Indication: Product used for unknown indication
     Route: 065

REACTIONS (10)
  - Suicide attempt [Recovering/Resolving]
  - Torsade de pointes [Unknown]
  - Intentional overdose [Unknown]
  - Electrocardiogram QT prolonged [Unknown]
  - Seizure [Unknown]
  - Somnolence [Unknown]
  - Sedation [Unknown]
  - Tachycardia [Unknown]
  - Hypotension [Unknown]
  - Extrapyramidal disorder [Unknown]
